FAERS Safety Report 26096749 (Version 2)
Quarter: 2025Q4

REPORT INFORMATION
  Report Type: Spontaneous
  Country: CA (occurrence: CA)
  Receive Date: 20251127
  Receipt Date: 20251225
  Transmission Date: 20260118
  Serious: Yes (Death, Hospitalization, Other)
  Sender: SPECGX
  Company Number: CA-SPECGX-T202501910

PATIENT
  Age: 3 Year
  Sex: Female

DRUGS (1)
  1. METHADOSE [Suspect]
     Active Substance: METHADONE HYDROCHLORIDE
     Indication: Product used for unknown indication
     Dosage: UNK
     Route: 065

REACTIONS (12)
  - Brain injury [Fatal]
  - Toxic encephalopathy [Fatal]
  - Toxicity to various agents [Fatal]
  - Brain oedema [Unknown]
  - Encephalitis [Unknown]
  - Hypersomnia [Unknown]
  - Hypertonia [Unknown]
  - Posturing [Unknown]
  - Hypoglycaemia [Unknown]
  - Shock [Unknown]
  - Depressed level of consciousness [Unknown]
  - Accidental exposure to product by child [Unknown]
